FAERS Safety Report 12121094 (Version 1)
Quarter: 2016Q1

REPORT INFORMATION
  Report Type: Spontaneous
  Country: US (occurrence: US)
  Receive Date: 20160226
  Receipt Date: 20160226
  Transmission Date: 20160526
  Serious: Yes (Other)
  Sender: FDA-Public Use
  Company Number: US-PFIZER INC-2016112118

PATIENT
  Age: 24 Year
  Sex: Male
  Weight: 86.18 kg

DRUGS (7)
  1. LEXAPRO [Concomitant]
     Active Substance: ESCITALOPRAM OXALATE
     Indication: DEPRESSION
     Dosage: 40MG ONCE AT NIGHT
  2. RISPERDAL [Concomitant]
     Active Substance: RISPERIDONE
     Indication: BIPOLAR II DISORDER
     Dosage: 0.5MG ONCE A DAY
     Route: 048
  3. VIAGRA [Suspect]
     Active Substance: SILDENAFIL CITRATE
     Indication: SEXUAL DYSFUNCTION
     Dosage: ONE TABLET ONCE
     Route: 048
     Dates: start: 20160221
  4. LITHIUM. [Concomitant]
     Active Substance: LITHIUM
     Indication: DEPRESSION
  5. LAMICTAL [Concomitant]
     Active Substance: LAMOTRIGINE
     Indication: BIPOLAR II DISORDER
     Dosage: TWO 200MG TABLETS ONCE A DAY
     Route: 048
  6. LITHIUM. [Concomitant]
     Active Substance: LITHIUM
     Indication: BIPOLAR II DISORDER
     Dosage: 30MG ONCE A DAY
     Route: 048
  7. LATUDA [Concomitant]
     Active Substance: LURASIDONE HYDROCHLORIDE
     Indication: BIPOLAR II DISORDER
     Dosage: 120MG TABLET ONCE A DAY
     Route: 048

REACTIONS (4)
  - Intentional product misuse [Unknown]
  - Erectile dysfunction [Not Recovered/Not Resolved]
  - Priapism [Recovered/Resolved with Sequelae]
  - Disturbance in sexual arousal [Not Recovered/Not Resolved]

NARRATIVE: CASE EVENT DATE: 20160221
